FAERS Safety Report 25575564 (Version 1)
Quarter: 2025Q3

REPORT INFORMATION
  Report Type: Spontaneous
  Country: US (occurrence: US)
  Receive Date: 20250718
  Receipt Date: 20250718
  Transmission Date: 20251020
  Serious: Yes (Death, Hospitalization)
  Sender: ROCHE
  Company Number: US-ROCHE-10000339283

PATIENT
  Age: 65 Year
  Sex: Male

DRUGS (4)
  1. RITUXIMAB [Suspect]
     Active Substance: RITUXIMAB
     Indication: Chronic myelomonocytic leukaemia
     Route: 065
  2. BENDAMUSTINE [Suspect]
     Active Substance: BENDAMUSTINE
     Indication: Chronic myelomonocytic leukaemia
     Route: 065
  3. GRANULOCYTE COLONY-STIMULATING FACTOR NOS [Suspect]
     Active Substance: GRANULOCYTE COLONY-STIMULATING FACTOR NOS
     Indication: Chronic myelomonocytic leukaemia
     Route: 065
  4. ZANUBRUTINIB [Concomitant]
     Active Substance: ZANUBRUTINIB

REACTIONS (7)
  - Disseminated intravascular coagulation [Unknown]
  - Tumour lysis syndrome [Unknown]
  - Hyperleukocytosis [Unknown]
  - Anaemia [Unknown]
  - Multiple organ dysfunction syndrome [Fatal]
  - Acute respiratory failure [Unknown]
  - Thrombocytopenia [Unknown]
